FAERS Safety Report 15381614 (Version 1)
Quarter: 2018Q3

REPORT INFORMATION
  Report Type: Spontaneous
  Country: US (occurrence: US)
  Receive Date: 20180913
  Receipt Date: 20180913
  Transmission Date: 20181010
  Serious: Yes (Hospitalization, Other)
  Sender: FDA-Public Use
  Company Number: PHHY2018US090904

PATIENT
  Age: 37 Year
  Sex: Female

DRUGS (1)
  1. MYFORTIC [Suspect]
     Active Substance: MYCOPHENOLATE SODIUM
     Indication: LUPUS NEPHRITIS
     Dosage: UNK
     Route: 065

REACTIONS (9)
  - Diarrhoea [Recovered/Resolved]
  - Tachycardia [Recovered/Resolved]
  - Vomiting [Recovering/Resolving]
  - Product use in unapproved indication [Unknown]
  - Nausea [Recovering/Resolving]
  - Colitis [Unknown]
  - Toxicity to various agents [Unknown]
  - Pancreatitis acute [Recovering/Resolving]
  - Abdominal pain [Recovering/Resolving]
